FAERS Safety Report 18415593 (Version 2)
Quarter: 2020Q4

REPORT INFORMATION
  Report Type: Report from Study
  Country: DE (occurrence: DE)
  Receive Date: 20201022
  Receipt Date: 20201027
  Transmission Date: 20210114
  Serious: Yes (Death, Other)
  Sender: FDA-Public Use
  Company Number: DE-PFIZER INC-2020408666

PATIENT

DRUGS (8)
  1. IFOSFAMIDE. [Suspect]
     Active Substance: IFOSFAMIDE
     Indication: CENTRAL NERVOUS SYSTEM LYMPHOMA
     Dosage: 800MG/M2 AS A 1-H INFUSION, CYCLIC, CYCLE 1-3 [ 1 CYCLE= 2 WEEKS)
     Route: 042
  2. SULFAMETHOXAZOLE+TRIMETHOPRIM [Concomitant]
     Active Substance: SULFAMETHOXAZOLE\TRIMETHOPRIM
     Indication: PROPHYLAXIS
     Dosage: UNK
  3. ACICLOVIR [Concomitant]
     Active Substance: ACYCLOVIR
     Indication: PROPHYLAXIS
  4. PREDNISOLONE. [Suspect]
     Active Substance: PREDNISOLONE
     Indication: CENTRAL NERVOUS SYSTEM LYMPHOMA
     Dosage: 3 MG, CYCLIC (INTRACEREBROVENTRICULAR CHEMOTHERAPY)
  5. CYTARABINE. [Suspect]
     Active Substance: CYTARABINE
     Indication: CENTRAL NERVOUS SYSTEM LYMPHOMA
     Dosage: 3000 MG/M2 BODY-SURFACE AREA AS A 3-H INFUSION, CYCLIC
  6. G-CSF [Concomitant]
     Active Substance: GRANULOCYTE COLONY-STIMULATING FACTOR NOS
     Indication: PROPHYLAXIS
     Dosage: UNK
  7. RITUXIMAB. [Suspect]
     Active Substance: RITUXIMAB
     Indication: CENTRAL NERVOUS SYSTEM LYMPHOMA
     Dosage: 375 MG/M2, CYCLIC,CYCLE 1-3 [ 1 CYCLE= 2 WEEKS)
     Route: 042
  8. METHOTREXATE SODIUM. [Suspect]
     Active Substance: METHOTREXATE SODIUM
     Indication: CENTRAL NERVOUS SYSTEM LYMPHOMA
     Dosage: 4-H INFUSION, CYCLIC
     Route: 042

REACTIONS (1)
  - Cardiac arrest [Fatal]
